FAERS Safety Report 4326103-8 (Version None)
Quarter: 2004Q1

REPORT INFORMATION
  Report Type: 
  Country: None (occurrence: None)
  Receive Date: 20040324
  Receipt Date: 20040310
  Transmission Date: 20041129
  Serious: Yes (Other)
  Sender: FDA-Public Use
  Company Number: 2004003833

PATIENT
  Age: 67 Year
  Sex: Female

DRUGS (4)
  1. ATORVASTATIN CALCIUM [Suspect]
     Indication: BLOOD CHOLESTEROL INCREASED
     Dosage: 10 MG (DAILY), ORAL
     Route: 048
     Dates: start: 20040115, end: 20040117
  2. NIFEDIPINE [Concomitant]
  3. FOLIC ACID [Concomitant]
  4. GALENIC  /PARACETAMOL/CODEINE/ (CODEINE, PARACETAMOL) [Concomitant]

REACTIONS (11)
  - DRUG INEFFECTIVE [None]
  - DYSPHAGIA [None]
  - EYE SWELLING [None]
  - MUSCLE SPASMS [None]
  - OEDEMA PERIPHERAL [None]
  - OROPHARYNGEAL SWELLING [None]
  - PAIN EXACERBATED [None]
  - PAIN IN EXTREMITY [None]
  - PYREXIA [None]
  - SPEECH DISORDER [None]
  - SWOLLEN TONGUE [None]
